FAERS Safety Report 16363349 (Version 1)
Quarter: 2019Q2

REPORT INFORMATION
  Report Type: Spontaneous
  Country: US (occurrence: US)
  Receive Date: 20190528
  Receipt Date: 20190528
  Transmission Date: 20190711
  Serious: No
  Sender: FDA-Public Use
  Company Number: US-STRIDES ARCOLAB LIMITED-2019SP000669

PATIENT

DRUGS (2)
  1. VANCOMYCIN [Suspect]
     Active Substance: VANCOMYCIN
     Indication: SKIN BACTERIAL INFECTION
     Dosage: 15 MG/KG, UNKNOWN
     Route: 042
  2. AZTREONAM. [Suspect]
     Active Substance: AZTREONAM
     Indication: SKIN BACTERIAL INFECTION
     Dosage: UNK
     Route: 042

REACTIONS (1)
  - Paraesthesia [Unknown]
